FAERS Safety Report 22767094 (Version 5)
Quarter: 2025Q1

REPORT INFORMATION
  Report Type: Spontaneous
  Country: US (occurrence: US)
  Receive Date: 20230731
  Receipt Date: 20250218
  Transmission Date: 20250408
  Serious: Yes (Other)
  Sender: PFIZER
  Company Number: US-PFIZER INC-PV202300131739

PATIENT
  Age: 66 Year
  Sex: Female
  Weight: 70.295 kg

DRUGS (3)
  1. XELJANZ XR [Suspect]
     Active Substance: TOFACITINIB CITRATE
     Indication: Rheumatoid arthritis
     Dosage: 11MG 1 PILL A DAY
     Dates: start: 2022
  2. ROSUVASTATIN [Concomitant]
     Active Substance: ROSUVASTATIN
     Dates: start: 202209
  3. LOSARTAN [Concomitant]
     Active Substance: LOSARTAN
     Dates: start: 2021

REACTIONS (2)
  - Mental impairment [Unknown]
  - Frustration tolerance decreased [Unknown]

NARRATIVE: CASE EVENT DATE: 20241001
